FAERS Safety Report 5409398-9 (Version None)
Quarter: 2007Q3

REPORT INFORMATION
  Report Type: 
  Country: None (occurrence: None)
  Receive Date: 20070808
  Receipt Date: 20070808
  Transmission Date: 20080115
  Serious: Yes (Hospitalization)
  Sender: FDA-Public Use
  Company Number: None

PATIENT
  Age: 55 Year
  Sex: Male
  Weight: 130 kg

DRUGS (8)
  1. COREG [Suspect]
     Indication: MYOCARDIAL INFARCTION
     Dosage: 12.5MG BID PO
     Route: 048
     Dates: start: 20070719, end: 20070724
  2. ALLOPURINOL [Concomitant]
  3. RANITIDINE [Concomitant]
  4. ASPIRIN [Concomitant]
  5. NORVASC [Concomitant]
  6. PLAVIX [Concomitant]
  7. NIACIN [Concomitant]
  8. ZOCOR [Concomitant]

REACTIONS (4)
  - PRURITUS [None]
  - RASH [None]
  - SKIN DISORDER [None]
  - SKIN WARM [None]
